FAERS Safety Report 5502552-7 (Version None)
Quarter: 2007Q4

REPORT INFORMATION
  Report Type: 
  Country: None (occurrence: None)
  Receive Date: 20071030
  Receipt Date: 20071023
  Transmission Date: 20080405
  Serious: Yes (Other)
  Sender: FDA-Public Use
  Company Number: GR-BOEHRINGER INGELHEIM PHARMACEUTICALS, INC.-2007-DE-06242GD

PATIENT
  Age: 24 Year
  Sex: Male

DRUGS (2)
  1. CLONIDINE [Suspect]
     Indication: SYSTOLIC HYPERTENSION
     Dosage: 50-100 MCG IN 10 ML NACL 0.9%
     Route: 042
  2. CLONIDINE [Suspect]
     Dosage: 600 MCG IN 500 ML DEXTROSE IN WATER 5% FOR CONTINUOUS INFUSION FOR 24 HOURS UP TO 750 MCG DAILY
     Route: 042

REACTIONS (1)
  - DRUG INEFFECTIVE [None]
